FAERS Safety Report 9827416 (Version 3)
Quarter: 2014Q1

REPORT INFORMATION
  Report Type: Report from Study
  Country: TW (occurrence: TW)
  Receive Date: 20140117
  Receipt Date: 20140123
  Transmission Date: 20141002
  Serious: Yes (Hospitalization)
  Sender: FDA-Public Use
  Company Number: TW-ONYX-2014-0085

PATIENT
  Age: 48 Year
  Sex: Male

DRUGS (4)
  1. CARFILZOMIB [Suspect]
     Indication: PLASMA CELL MYELOMA
     Route: 042
     Dates: start: 20130826, end: 20130827
  2. CARFILZOMIB [Suspect]
     Route: 042
     Dates: start: 20130902, end: 20130910
  3. CARFILZOMIB [Suspect]
     Route: 042
     Dates: start: 20130923
  4. DEXAMETHASONE [Suspect]
     Indication: PLASMA CELL MYELOMA
     Route: 048
     Dates: start: 20130826

REACTIONS (1)
  - Oedema peripheral [Recovering/Resolving]
